FAERS Safety Report 8162843-0 (Version None)
Quarter: 2012Q1

REPORT INFORMATION
  Report Type: 
  Country: None (occurrence: None)
  Receive Date: 20120224
  Receipt Date: 20120217
  Transmission Date: 20120608
  Serious: Yes (Hospitalization)
  Sender: FDA-Public Use
  Company Number: US-US-EMD SERONO, INC.-7045941

PATIENT
  Sex: Female

DRUGS (6)
  1. CYMBALTA [Concomitant]
     Indication: DEPRESSION
  2. CONTINUOUS POSITIVE AIRWAY PRESSURE [Concomitant]
     Indication: SLEEP APNOEA SYNDROME
  3. REBIF [Suspect]
     Indication: MULTIPLE SCLEROSIS
     Route: 058
     Dates: start: 20100830
  4. UNSPECIFIED PAIN MEDICATIONS [Concomitant]
     Indication: BACK PAIN
  5. UNSPECIFIED ANTIDEPRESSANTS [Concomitant]
     Indication: DEPRESSION
  6. LEXAPRO [Concomitant]
     Indication: DEPRESSION

REACTIONS (9)
  - DEPRESSION [None]
  - ASTHENIA [None]
  - SUICIDAL IDEATION [None]
  - MOOD SWINGS [None]
  - LACK OF SATIETY [None]
  - HEADACHE [None]
  - INJECTION SITE REACTION [None]
  - APPETITE DISORDER [None]
  - CENTRAL NERVOUS SYSTEM LESION [None]
